FAERS Safety Report 7243573-6 (Version None)
Quarter: 2011Q1

REPORT INFORMATION
  Report Type: 
  Country: None (occurrence: None)
  Receive Date: 20110125
  Receipt Date: 20110113
  Transmission Date: 20110831
  Serious: Yes (Other)
  Sender: FDA-Public Use
  Company Number: PHHY2011TW03255

PATIENT
  Age: 64 Year
  Sex: Female

DRUGS (2)
  1. CALCIUM [Concomitant]
  2. ACLASTA [Suspect]
     Indication: OSTEOPOROSIS POSTMENOPAUSAL
     Dosage: 5 MG
     Dates: start: 20100726

REACTIONS (2)
  - FRACTURE [None]
  - FALL [None]
